FAERS Safety Report 22211298 (Version 1)
Quarter: 2023Q2

REPORT INFORMATION
  Report Type: Other
  Country: CA (occurrence: CA)
  Receive Date: 20230414
  Receipt Date: 20230414
  Transmission Date: 20230722
  Serious: Yes (Death, Congenital Anomaly, Other)
  Sender: FDA-Public Use
  Company Number: CA-PFIZER INC-202300155981

PATIENT
  Sex: Male
  Weight: 1 kg

DRUGS (1)
  1. HYDROCORTISONE [Suspect]
     Active Substance: HYDROCORTISONE
     Indication: Foetal exposure during pregnancy
     Dosage: UNK
     Route: 064

REACTIONS (5)
  - Foetal exposure during pregnancy [Fatal]
  - Adrenal insufficiency neonatal [Fatal]
  - Congenital herpes simplex infection [Fatal]
  - Low birth weight baby [Fatal]
  - Premature baby [Fatal]
